FAERS Safety Report 18404631 (Version 1)
Quarter: 2020Q4

REPORT INFORMATION
  Report Type: Spontaneous
  Country: MX (occurrence: MX)
  Receive Date: 20201020
  Receipt Date: 20201020
  Transmission Date: 20210114
  Serious: Yes (Other)
  Sender: FDA-Public Use
  Company Number: MX-MYLANLABS-2020M1087659

PATIENT
  Age: 53 Year
  Sex: Male

DRUGS (13)
  1. IFOSFAMIDE. [Suspect]
     Active Substance: IFOSFAMIDE
     Indication: LANGERHANS^ CELL HISTIOCYTOSIS
     Dosage: UNK UNK, CYCLE SIX CYCLES
     Route: 065
  2. CARBOPLATIN. [Suspect]
     Active Substance: CARBOPLATIN
     Indication: LANGERHANS^ CELL HISTIOCYTOSIS
     Dosage: FOUR CYCLES
     Route: 065
  3. MESNA. [Suspect]
     Active Substance: MESNA
     Indication: LANGERHANS^ CELL HISTIOCYTOSIS
     Dosage: CYCLE SIX CYCLES
     Route: 065
  4. MITOXANTRONE [Suspect]
     Active Substance: MITOXANTRONE HYDROCHLORIDE
     Indication: LANGERHANS^ CELL HISTIOCYTOSIS
     Dosage: SIX CYCLES
     Route: 065
  5. PREDNISONE. [Suspect]
     Active Substance: PREDNISONE
     Indication: LANGERHANS^ CELL HISTIOCYTOSIS
     Dosage: FOUR CYCLES
     Route: 065
  6. CYCLOPHOSPHAMIDE. [Suspect]
     Active Substance: CYCLOPHOSPHAMIDE
     Indication: LANGERHANS^ CELL HISTIOCYTOSIS
     Dosage: FOUR CYCLES
     Route: 065
  7. VINCRISTINE [Suspect]
     Active Substance: VINCRISTINE
     Indication: LANGERHANS^ CELL HISTIOCYTOSIS
     Dosage: UNK UNK, CYCLE FOUR CYCLES
     Route: 065
  8. CYTARABINE. [Suspect]
     Active Substance: CYTARABINE
     Indication: LANGERHANS^ CELL HISTIOCYTOSIS
     Dosage: CYCLEHIGH DOSE; FOUR CYCLES
     Route: 065
  9. THALIDOMIDE [Suspect]
     Active Substance: THALIDOMIDE
     Indication: LANGERHANS^ CELL HISTIOCYTOSIS
     Dosage: 100 MILLIGRAM, QD
     Route: 065
  10. EPIRUBICIN [Suspect]
     Active Substance: EPIRUBICIN
     Indication: LANGERHANS^ CELL HISTIOCYTOSIS
     Dosage: CYCLE FOUR CYCLES
     Route: 065
  11. DEXAMETHASONE. [Suspect]
     Active Substance: DEXAMETHASONE
     Indication: LANGERHANS^ CELL HISTIOCYTOSIS
     Dosage: FOUR CYCLES
     Route: 065
  12. ETOPOSIDE. [Suspect]
     Active Substance: ETOPOSIDE
     Indication: LANGERHANS^ CELL HISTIOCYTOSIS
     Dosage: SIX CYCLES
     Route: 065
  13. METHOTREXATE. [Suspect]
     Active Substance: METHOTREXATE
     Indication: LANGERHANS^ CELL HISTIOCYTOSIS
     Dosage: 25 MILLIGRAM, QW
     Route: 065

REACTIONS (1)
  - Drug ineffective [Unknown]
